FAERS Safety Report 10047194 (Version 1)
Quarter: 2014Q1

REPORT INFORMATION
  Report Type: Spontaneous
  Country: US (occurrence: US)
  Receive Date: 20140331
  Receipt Date: 20140331
  Transmission Date: 20141002
  Serious: No
  Sender: FDA-Public Use
  Company Number: US-MYLANLABS-2013S1018367

PATIENT
  Age: 35 Year
  Sex: Female
  Weight: 104.33 kg

DRUGS (6)
  1. FENTANYL TRANSDERMAL SYSTEM [Suspect]
     Indication: PAIN
     Dosage: CHANGE PATCH EVERY 3 DAYS.
     Route: 062
     Dates: start: 201303
  2. NORCO [Suspect]
     Indication: PAIN
     Route: 048
  3. SEROQUEL [Concomitant]
     Indication: BIPOLAR DISORDER
  4. LOPRESSOR [Concomitant]
     Indication: SUPRAVENTRICULAR TACHYCARDIA
  5. HCTZ [Concomitant]
  6. DOXEPIN [Concomitant]
     Indication: ANXIETY
     Dates: start: 201308

REACTIONS (1)
  - Drug screen false positive [Not Recovered/Not Resolved]
